FAERS Safety Report 10413102 (Version 1)
Quarter: 2014Q2

REPORT INFORMATION
  Report Type: Spontaneous
  Country: US (occurrence: None)
  Receive Date: 20140530
  Receipt Date: 20140530
  Transmission Date: 20141212
  Serious: No
  Sender: FDA-Public Use
  Company Number: 227525

PATIENT
  Sex: Female

DRUGS (1)
  1. PICATO (INGENOL MEBUTATE) (0.015 %, GEL) [Suspect]
     Indication: PRODUCT USED FOR UNKNOWN INDICATION
     Dosage: 1 IN 1 D
     Dates: start: 20140423

REACTIONS (7)
  - Eye irritation [None]
  - Eye irritation [None]
  - Skin tightness [None]
  - Eye disorder [None]
  - Throat irritation [None]
  - Accidental exposure to product [None]
  - Accidental exposure to product [None]
